FAERS Safety Report 14908289 (Version 2)
Quarter: 2018Q2

REPORT INFORMATION
  Report Type: Spontaneous
  Country: IN (occurrence: IN)
  Receive Date: 20180517
  Receipt Date: 20180525
  Transmission Date: 20180711
  Serious: Yes (Other)
  Sender: FDA-Public Use
  Company Number: IN-009507513-1805IND006959

PATIENT

DRUGS (1)
  1. INVANZ [Suspect]
     Active Substance: ERTAPENEM SODIUM
     Dosage: FOR MORE TAHN 7 DAYS

REACTIONS (2)
  - Neuropathy peripheral [Unknown]
  - Neurotoxicity [Unknown]
